FAERS Safety Report 10153130 (Version 1)
Quarter: 2014Q2

REPORT INFORMATION
  Report Type: Spontaneous
  Country: US (occurrence: US)
  Receive Date: 20140505
  Receipt Date: 20140505
  Transmission Date: 20141212
  Serious: Yes (Other)
  Sender: FDA-Public Use
  Company Number: US-TEVA-479473USA

PATIENT
  Age: 20 Year
  Sex: Female
  Weight: 59.93 kg

DRUGS (3)
  1. PARAGARD 380A [Suspect]
     Indication: CONTRACEPTION
     Route: 015
     Dates: start: 20140321, end: 20140414
  2. PRENATAL VITAMINS [Concomitant]
     Indication: BREAST FEEDING
  3. IRON [Concomitant]
     Indication: SUPPLEMENTATION THERAPY

REACTIONS (1)
  - Device dislocation [Recovered/Resolved]
